FAERS Safety Report 11509222 (Version 1)
Quarter: 2015Q3

REPORT INFORMATION
  Report Type: Report from Study
  Country: US (occurrence: US)
  Receive Date: 20150915
  Receipt Date: 20150915
  Transmission Date: 20151125
  Serious: Yes (Other)
  Sender: FDA-Public Use
  Company Number: US-ARIAD-2014US004288

PATIENT

DRUGS (4)
  1. PONATINIB [Suspect]
     Active Substance: PONATINIB
     Dosage: 15 MG, QD
     Route: 048
     Dates: end: 20140520
  2. PONATINIB [Suspect]
     Active Substance: PONATINIB
     Indication: CHRONIC MYELOID LEUKAEMIA
     Dosage: 15 MG, QOD
     Route: 048
  3. PONATINIB [Suspect]
     Active Substance: PONATINIB
     Dosage: UNK
     Route: 048
  4. PONATINIB [Suspect]
     Active Substance: PONATINIB
     Dosage: 15 MG, QOD
     Route: 048
     Dates: start: 20140528

REACTIONS (9)
  - Balance disorder [Unknown]
  - Dyspepsia [Unknown]
  - Mobility decreased [Unknown]
  - Fatigue [Unknown]
  - Deafness [Not Recovered/Not Resolved]
  - Weight decreased [Unknown]
  - Eating disorder [Unknown]
  - Urine analysis abnormal [Unknown]
  - Pancreatitis [Recovered/Resolved]
